FAERS Safety Report 24862337 (Version 3)
Quarter: 2025Q1

REPORT INFORMATION
  Report Type: Spontaneous
  Country: US (occurrence: US)
  Receive Date: 20250120
  Receipt Date: 20250213
  Transmission Date: 20250409
  Serious: No
  Sender: PFIZER
  Company Number: US-PFIZER INC-202500011270

PATIENT
  Age: 64 Year
  Sex: Female

DRUGS (8)
  1. LITFULO [Suspect]
     Active Substance: RITLECITINIB TOSYLATE
     Dosage: TAKE 1 CAPSULE (50MG) BY MOUTH DAILY
     Route: 048
     Dates: start: 20241205
  2. DILTIAZEM [Concomitant]
     Active Substance: DILTIAZEM
  3. DOXYCYCLINE [Concomitant]
     Active Substance: DOXYCYCLINE
  4. DOXYCYCLINE HYCLATE [Concomitant]
     Active Substance: DOXYCYCLINE HYCLATE
  5. MONTELUKAST [Concomitant]
     Active Substance: MONTELUKAST
  6. MUPIROCIN [Concomitant]
     Active Substance: MUPIROCIN
  7. TRIAMCINOLONE [Concomitant]
     Active Substance: TRIAMCINOLONE
  8. VENTOLIN HFA [Concomitant]
     Active Substance: ALBUTEROL SULFATE

REACTIONS (3)
  - Joint swelling [Not Recovered/Not Resolved]
  - Peripheral swelling [Not Recovered/Not Resolved]
  - Loss of personal independence in daily activities [Unknown]
